FAERS Safety Report 19281790 (Version 2)
Quarter: 2021Q2

REPORT INFORMATION
  Report Type: Other
  Country: DE (occurrence: DE)
  Receive Date: 20210521
  Receipt Date: 20210524
  Transmission Date: 20210717
  Serious: No
  Sender: FDA-Public Use
  Company Number: DE-ROCHE-2830941

PATIENT
  Age: 6 Year
  Sex: Male

DRUGS (10)
  1. PREDNISOLONE. [Concomitant]
     Active Substance: PREDNISOLONE
     Route: 065
  2. DARATUMUMAB [Concomitant]
     Active Substance: DARATUMUMAB
     Indication: STEM CELL TRANSPLANT
     Route: 065
  3. DARATUMUMAB [Concomitant]
     Active Substance: DARATUMUMAB
     Indication: IMMUNE-MEDIATED CYTOPENIA
     Route: 065
  4. CYCLOSPORINE A [Concomitant]
     Active Substance: CYCLOSPORINE
     Indication: GRAFT VERSUS HOST DISEASE
  5. PREDNISOLONE. [Concomitant]
     Active Substance: PREDNISOLONE
     Dosage: INCREASED TO 2MG/KG
     Route: 065
  6. RITUXIMAB. [Suspect]
     Active Substance: RITUXIMAB
     Indication: IMMUNE-MEDIATED CYTOPENIA
     Dosage: STARTING DAY 87 POST HSCT, 375 MG/M2/DOSE, TOTAL OF WEEKLY 6 DOSES
     Route: 041
  7. ECULIZUMAB [Concomitant]
     Active Substance: ECULIZUMAB
     Indication: SALVAGE THERAPY
  8. PREDNISOLONE. [Concomitant]
     Active Substance: PREDNISOLONE
     Indication: IMMUNE THROMBOCYTOPENIA
     Dosage: TAPERING DOSE
     Route: 065
  9. RITUXIMAB. [Suspect]
     Active Substance: RITUXIMAB
     Indication: STEM CELL TRANSPLANT
  10. METHYLPREDNISOLONE. [Concomitant]
     Active Substance: METHYLPREDNISOLONE
     Indication: SALVAGE THERAPY
     Dosage: PULSES 20 MG/KG/DAY FOR 3 DAYS

REACTIONS (2)
  - No adverse event [Unknown]
  - Off label use [Unknown]
